FAERS Safety Report 19070886 (Version 1)
Quarter: 2021Q1

REPORT INFORMATION
  Report Type: Spontaneous
  Country: FR (occurrence: FR)
  Receive Date: 20210330
  Receipt Date: 20210330
  Transmission Date: 20210420
  Serious: Yes (Hospitalization, Other)
  Sender: FDA-Public Use
  Company Number: FR-AUROBINDO-AUR-APL-2021-012158

PATIENT
  Age: 49 Year
  Sex: Male

DRUGS (2)
  1. IRINOTECAN [Suspect]
     Active Substance: IRINOTECAN
     Indication: MEDULLOBLASTOMA RECURRENT
     Dosage: 1 DOSAGE FORM
     Route: 042
     Dates: start: 202008
  2. SIROLIMUS. [Suspect]
     Active Substance: SIROLIMUS
     Indication: MEDULLOBLASTOMA RECURRENT
     Dosage: 1.5 MILLIGRAM
     Route: 048
     Dates: start: 202008, end: 20210223

REACTIONS (2)
  - Interstitial lung disease [Not Recovered/Not Resolved]
  - Alveolitis [Not Recovered/Not Resolved]

NARRATIVE: CASE EVENT DATE: 20210220
